FAERS Safety Report 17261723 (Version 1)
Quarter: 2020Q1

REPORT INFORMATION
  Report Type: Spontaneous
  Country: US (occurrence: US)
  Receive Date: 20200113
  Receipt Date: 20200113
  Transmission Date: 20200409
  Serious: No
  Sender: FDA-Public Use
  Company Number: US-MYLANLABS-2020M1000072

PATIENT
  Sex: Female
  Weight: 56 kg

DRUGS (1)
  1. ESTRADIOL TRANSDERMAL SYSTEM [Suspect]
     Active Substance: ESTRADIOL
     Indication: HORMONE REPLACEMENT THERAPY
     Dosage: 0.05 MILLIGRAM
     Route: 062
     Dates: start: 201906

REACTIONS (5)
  - Adverse event [Unknown]
  - Skin exfoliation [Unknown]
  - Product adhesion issue [Unknown]
  - Muscle spasms [Not Recovered/Not Resolved]
  - Metrorrhagia [Unknown]
